FAERS Safety Report 6739430-1 (Version None)
Quarter: 2010Q2

REPORT INFORMATION
  Report Type: 
  Country: None (occurrence: None)
  Receive Date: 20100521
  Receipt Date: 20100511
  Transmission Date: 20101027
  Serious: Yes (Hospitalization, Other)
  Sender: FDA-Public Use
  Company Number: TPA2010A02816

PATIENT
  Age: 6 Decade
  Sex: Female

DRUGS (1)
  1. ACTOS [Suspect]
     Dosage: 1 IN 1 D, PER ORAL
     Route: 048

REACTIONS (1)
  - CARDIAC TAMPONADE [None]
